FAERS Safety Report 7451886-8 (Version None)
Quarter: 2011Q2

REPORT INFORMATION
  Report Type: 
  Country: None (occurrence: None)
  Receive Date: 20110502
  Receipt Date: 20110420
  Transmission Date: 20111010
  Serious: Yes (Other)
  Sender: FDA-Public Use
  Company Number: FR-PFIZER INC-2011085954

PATIENT
  Sex: Female

DRUGS (1)
  1. ZOLOFT [Suspect]
     Indication: DEPRESSION
     Dosage: UNK

REACTIONS (30)
  - DYSARTHRIA [None]
  - EPISTAXIS [None]
  - WEIGHT INCREASED [None]
  - TINNITUS [None]
  - VOMITING [None]
  - BACK PAIN [None]
  - MUSCULAR WEAKNESS [None]
  - RESPIRATORY RATE DECREASED [None]
  - GAIT DISTURBANCE [None]
  - GASTRIC ULCER [None]
  - COUGH [None]
  - PARAESTHESIA [None]
  - OCULAR DISCOMFORT [None]
  - MUSCLE TIGHTNESS [None]
  - RESPIRATORY RATE INCREASED [None]
  - TREMOR [None]
  - ABNORMAL BEHAVIOUR [None]
  - SKIN DISORDER [None]
  - WHEEZING [None]
  - HYPOAESTHESIA [None]
  - WEIGHT DECREASED [None]
  - URINARY INCONTINENCE [None]
  - MUSCLE CONTRACTURE [None]
  - MOUTH ULCERATION [None]
  - THROAT TIGHTNESS [None]
  - ABDOMINAL PAIN UPPER [None]
  - MIGRAINE [None]
  - DISTURBANCE IN ATTENTION [None]
  - DYSPNOEA [None]
  - RHINORRHOEA [None]
